FAERS Safety Report 19895961 (Version 1)
Quarter: 2021Q3

REPORT INFORMATION
  Report Type: Spontaneous
  Country: IT (occurrence: IT)
  Receive Date: 20210929
  Receipt Date: 20210929
  Transmission Date: 20211014
  Serious: Yes (Other)
  Sender: FDA-Public Use
  Company Number: IT-MYLANLABS-2021M1065935

PATIENT
  Sex: Female

DRUGS (1)
  1. HYDROCHLOROTHIAZIDE/OLMESARTAN MEDOXOMIL [Suspect]
     Active Substance: HYDROCHLOROTHIAZIDE\OLMESARTAN MEDOXOMIL
     Indication: HYPERTENSION
     Dosage: UNK (20 MG PLUS 12.5 MG)
     Route: 065

REACTIONS (6)
  - Wrong technique in product usage process [Unknown]
  - Syncope [Unknown]
  - Myalgia [Unknown]
  - Eye swelling [Unknown]
  - Vomiting [Unknown]
  - Abdominal pain [Unknown]

NARRATIVE: CASE EVENT DATE: 20210508
